FAERS Safety Report 5801606-5 (Version None)
Quarter: 2008Q3

REPORT INFORMATION
  Report Type: 
  Country: None (occurrence: None)
  Receive Date: 20080702
  Receipt Date: 20080627
  Transmission Date: 20090109
  Serious: Yes (Life-Threatening)
  Sender: FDA-Public Use
  Company Number: 2008TJ0153

PATIENT
  Age: 5 Year
  Sex: Female
  Weight: 15.8759 kg

DRUGS (1)
  1. TWINJECT (EPINEPHRINE) 0.15 MG (VERUS) [Suspect]
     Indication: ANAPHYLACTIC REACTION
     Dosage: 0.15 MG., PRN, INTRAMUSCULAR
     Route: 030
     Dates: start: 20080627

REACTIONS (1)
  - DEVICE MALFUNCTION [None]
